FAERS Safety Report 8987672 (Version 1)
Quarter: 2012Q4

REPORT INFORMATION
  Report Type: 
  Country: GB (occurrence: GB)
  Receive Date: 20121227
  Receipt Date: 20121227
  Transmission Date: 20130627
  Serious: Yes (Disabling)
  Sender: FDA-Public Use
  Company Number: GB-TEVA-376988ISR

PATIENT
  Sex: Female
  Weight: 69 kg

DRUGS (2)
  1. TERBINAFINE [Suspect]
     Indication: ONYCHOMYCOSIS
     Route: 048
     Dates: start: 20120504, end: 20120526
  2. ASPIRIN [Concomitant]

REACTIONS (8)
  - Alopecia [Recovering/Resolving]
  - Vertigo [Recovering/Resolving]
  - Lethargy [Recovering/Resolving]
  - Nausea [Recovering/Resolving]
  - Depression [Recovering/Resolving]
  - Visual impairment [Recovering/Resolving]
  - Anxiety [Unknown]
  - Malaise [Unknown]
